FAERS Safety Report 13621067 (Version 2)
Quarter: 2017Q2

REPORT INFORMATION
  Report Type: Spontaneous
  Country: US (occurrence: US)
  Receive Date: 20170607
  Receipt Date: 20170628
  Transmission Date: 20170830
  Serious: Yes (Other)
  Sender: FDA-Public Use
  Company Number: US-CALIFORNIA PHARMACY + COMPOUNDING CENTER-2021641

PATIENT
  Age: 77 Year
  Sex: Female

DRUGS (1)
  1. BEVACIZUMAB 1.25MG/0.05ML PFS SOL [Suspect]
     Active Substance: BEVACIZUMAB
     Indication: DIABETIC RETINOPATHY
     Route: 047
     Dates: start: 20140324

REACTIONS (1)
  - Endophthalmitis [Recovering/Resolving]

NARRATIVE: CASE EVENT DATE: 20170517
